FAERS Safety Report 14961703 (Version 2)
Quarter: 2018Q3

REPORT INFORMATION
  Report Type: Report from Study
  Country: CA (occurrence: CA)
  Receive Date: 20180601
  Receipt Date: 20180914
  Transmission Date: 20181010
  Serious: Yes (Other)
  Sender: FDA-Public Use
  Company Number: CA-AMGEN-CANSL2018058265

PATIENT
  Age: 74 Year
  Sex: Male
  Weight: 103 kg

DRUGS (10)
  1. METFORMIN [Concomitant]
     Active Substance: METFORMIN HYDROCHLORIDE
     Indication: DIABETES MELLITUS
     Dosage: UNK
  2. VITAMIN D3 [Concomitant]
     Active Substance: CHOLECALCIFEROL
     Dosage: 1000 UNIT, QD
     Route: 048
     Dates: start: 20180424
  3. RATIO?ECTOSONE [Concomitant]
     Active Substance: BETAMETHASONE VALERATE
     Dosage: 0.1 %, BID
     Route: 061
     Dates: start: 20180424
  4. ALTACE [Concomitant]
     Active Substance: RAMIPRIL
     Dosage: 10 MG, QD
     Route: 048
     Dates: start: 20180424
  5. ASA [Concomitant]
     Active Substance: ASPIRIN
     Dosage: 81 MG, QD
     Route: 048
     Dates: start: 20180424
  6. CHLORTHALIDONE. [Concomitant]
     Active Substance: CHLORTHALIDONE
     Dosage: 25 MG, QD
     Route: 048
     Dates: start: 20180424
  7. CALCIUM CARBONATE. [Concomitant]
     Active Substance: CALCIUM CARBONATE
     Dosage: 500 MG, QD
     Route: 048
     Dates: start: 20180424
  8. REPATHA [Suspect]
     Active Substance: EVOLOCUMAB
     Indication: DYSLIPIDAEMIA
     Dosage: 140 MG/ML, Q2WK
     Route: 058
     Dates: start: 20160718, end: 2018
  9. REPATHA [Suspect]
     Active Substance: EVOLOCUMAB
     Dosage: UNK UNK, Q3WK
     Route: 065
  10. RATIO?METFORMIN [Concomitant]
     Active Substance: METFORMIN HYDROCHLORIDE
     Dosage: 500 MG, BID
     Route: 048
     Dates: start: 20180424

REACTIONS (13)
  - Pain in extremity [Recovering/Resolving]
  - Back pain [Recovered/Resolved]
  - Gait disturbance [Unknown]
  - Myalgia [Recovering/Resolving]
  - Muscle spasms [Unknown]
  - Prostate cancer [Unknown]
  - Hepatic steatosis [Unknown]
  - Arthralgia [Recovering/Resolving]
  - Syncope [Unknown]
  - Pharyngo-oesophageal diverticulum [Unknown]
  - Left ventricular hypertrophy [Unknown]
  - Off label use [Unknown]
  - Ventricular tachycardia [Unknown]

NARRATIVE: CASE EVENT DATE: 20170427
